FAERS Safety Report 13890388 (Version 1)
Quarter: 2017Q3

REPORT INFORMATION
  Report Type: Spontaneous
  Country: US (occurrence: US)
  Receive Date: 20170816
  Receipt Date: 20170816
  Transmission Date: 20171127
  Serious: Yes (Disabling)
  Sender: FDA-Public Use
  Company Number: None

PATIENT
  Age: 62 Year
  Sex: Female
  Weight: 78.75 kg

DRUGS (6)
  1. VICTOZA [Concomitant]
     Active Substance: LIRAGLUTIDE
  2. FERROUS SULFATE. [Concomitant]
     Active Substance: FERROUS SULFATE
  3. BASAGLAR [Concomitant]
     Active Substance: INSULIN GLARGINE
  4. NOVOLOG [Concomitant]
     Active Substance: INSULIN ASPART
  5. CYMBALTA [Concomitant]
     Active Substance: DULOXETINE HYDROCHLORIDE
  6. JARDIANCE [Suspect]
     Active Substance: EMPAGLIFLOZIN
     Indication: TYPE 2 DIABETES MELLITUS
     Dosage: ?          QUANTITY:1 CAPSULE(S);?
     Route: 048

REACTIONS (2)
  - Urinary tract infection [None]
  - Discomfort [None]

NARRATIVE: CASE EVENT DATE: 20170814
